FAERS Safety Report 8841255 (Version 1)
Quarter: 2012Q4

REPORT INFORMATION
  Report Type: 
  Country: FR (occurrence: FR)
  Receive Date: 20121015
  Receipt Date: 20121015
  Transmission Date: 20130627
  Serious: Yes (Hospitalization)
  Sender: FDA-Public Use
  Company Number: FR-ABBOTT-03I-056-0211159-00

PATIENT
  Age: 79 Year
  Sex: Male

DRUGS (5)
  1. ENANTONE [Suspect]
     Indication: PROSTATE CANCER
     Route: 030
     Dates: start: 20020809
  2. ANANDRON [Concomitant]
     Indication: PROSTATE CANCER
     Route: 048
     Dates: start: 20020809
  3. SERESTA [Concomitant]
     Indication: DEMENTIA
  4. IMOVANE [Concomitant]
     Indication: DEMENTIA
  5. ZOLOFT [Concomitant]
     Indication: DEMENTIA

REACTIONS (2)
  - Chest pain [Not Recovered/Not Resolved]
  - Vomiting [Not Recovered/Not Resolved]
